FAERS Safety Report 24186682 (Version 1)
Quarter: 2024Q3

REPORT INFORMATION
  Report Type: Report from Study
  Country: US (occurrence: None)
  Receive Date: 20240808
  Receipt Date: 20240808
  Transmission Date: 20241017
  Serious: Yes (Hospitalization)
  Sender: ASTRAZENECA
  Company Number: 2022A142739

PATIENT
  Sex: Female

DRUGS (1)
  1. FASENRA [Suspect]
     Active Substance: BENRALIZUMAB
     Indication: Asthma
     Dosage: INJECT 1 PEN UNDER THE SKIN AT WEEK 0, 4 AND 8, THEN INJECT 1 PEN EVERY 8 WEEKS THEREAFTER
     Route: 058
     Dates: start: 20220124

REACTIONS (1)
  - Nail infection [Unknown]
